FAERS Safety Report 19367384 (Version 1)
Quarter: 2021Q2

REPORT INFORMATION
  Report Type: Spontaneous
  Country: US (occurrence: US)
  Receive Date: 20210602
  Receipt Date: 20210602
  Transmission Date: 20210717
  Serious: No
  Sender: FDA-Public Use
  Company Number: US-ROCHE-2789092

PATIENT
  Sex: Male
  Weight: 102.1 kg

DRUGS (8)
  1. RISDIPLAM. [Suspect]
     Active Substance: RISDIPLAM
     Indication: MUSCLE ATROPHY
     Dosage: 5 MG (6.6 ML) VIA G?TUBE
     Route: 065
  2. ALBUTEROL. [Concomitant]
     Active Substance: ALBUTEROL
     Dosage: 5 MG/ML
  3. PULMICORT TURBUHALER [Concomitant]
     Active Substance: BUDESONIDE
     Dosage: 0.25 MG/2ML
  4. LEVOCARNITINE. [Concomitant]
     Active Substance: LEVOCARNITINE
     Dosage: 100 MG/ML
  5. CLOTRIMAZOLE. [Concomitant]
     Active Substance: CLOTRIMAZOLE
  6. VALPROIC ACID. [Concomitant]
     Active Substance: VALPROIC ACID
     Dosage: 500 MG/10ML
  7. LEVOBUNOLOL [Concomitant]
     Active Substance: LEVOBUNOLOL
  8. ZYRTEC [Concomitant]
     Active Substance: CETIRIZINE HYDROCHLORIDE
     Dosage: 10 MG CAP

REACTIONS (1)
  - Influenza [Unknown]
